FAERS Safety Report 8506111-3 (Version None)
Quarter: 2012Q3

REPORT INFORMATION
  Report Type: 
  Country: None (occurrence: None)
  Receive Date: 20120712
  Receipt Date: 20120628
  Transmission Date: 20120928
  Serious: Yes (Other)
  Sender: FDA-Public Use
  Company Number: US-ROCHE-1056729

PATIENT
  Sex: Female
  Weight: 74.91 kg

DRUGS (3)
  1. ACCUTANE [Suspect]
     Route: 065
     Dates: end: 20041201
  2. ACCUTANE [Suspect]
     Indication: ACNE
     Route: 065
     Dates: start: 19990101
  3. ACCUTANE [Suspect]
     Route: 065
     Dates: start: 20020401, end: 20040601

REACTIONS (9)
  - COLITIS ULCERATIVE [None]
  - INFLAMMATORY BOWEL DISEASE [None]
  - MYALGIA [None]
  - HEADACHE [None]
  - MIGRAINE [None]
  - ACUTE SINUSITIS [None]
  - DEPRESSION [None]
  - NASAL POLYPS [None]
  - PAIN IN EXTREMITY [None]
